FAERS Safety Report 16468808 (Version 4)
Quarter: 2019Q3

REPORT INFORMATION
  Report Type: Spontaneous
  Country: US (occurrence: US)
  Receive Date: 20190624
  Receipt Date: 20190711
  Transmission Date: 20191004
  Serious: Yes (Death, Hospitalization)
  Sender: FDA-Public Use
  Company Number: US-HORIZON-ACT-0179-2019

PATIENT
  Age: 13 Month
  Sex: Female

DRUGS (14)
  1. FENTANYL. [Concomitant]
     Active Substance: FENTANYL
  2. FERROUS SULFATE. [Concomitant]
     Active Substance: FERROUS SULFATE
  3. DECADRON [Concomitant]
     Active Substance: DEXAMETHASONE
  4. CALCIUM CARBONATE. [Concomitant]
     Active Substance: CALCIUM CARBONATE
  5. SODIUM PHOSPHATE [Concomitant]
     Active Substance: SODIUM PHOSPHATE
  6. CALCITRIOL. [Concomitant]
     Active Substance: CALCITRIOL
  7. METOLAZONE. [Concomitant]
     Active Substance: METOLAZONE
  8. VITAMIN D [Concomitant]
     Active Substance: VITAMIN D NOS
  9. PRECEDEX [Concomitant]
     Active Substance: DEXMEDETOMIDINE HYDROCHLORIDE
  10. VECURONIUM [Concomitant]
     Active Substance: VECURONIUM BROMIDE
  11. ALBUTEROL. [Concomitant]
     Active Substance: ALBUTEROL
  12. ACTIMMUNE [Suspect]
     Active Substance: INTERFERON GAMMA-1B
     Indication: OSTEOPETROSIS
     Dosage: 0.3 ML 3 TIMES A WEEK
     Dates: start: 20190430, end: 20190614
  13. DIAZEPAM. [Concomitant]
     Active Substance: DIAZEPAM
  14. FUROSEMIDE. [Concomitant]
     Active Substance: FUROSEMIDE

REACTIONS (3)
  - Mechanical ventilation [Unknown]
  - Respiratory failure [Fatal]
  - Lung infection [Fatal]

NARRATIVE: CASE EVENT DATE: 2019
